FAERS Safety Report 6138417-X (Version None)
Quarter: 2009Q1

REPORT INFORMATION
  Report Type: 
  Country: None (occurrence: None)
  Receive Date: 20090331
  Receipt Date: 20090323
  Transmission Date: 20090719
  Serious: Yes (Disabling, Other)
  Sender: FDA-Public Use
  Company Number: MX-ELI_LILLY_AND_COMPANY-MX200903006213

PATIENT
  Age: 58 Year
  Sex: Male
  Weight: 106 kg

DRUGS (7)
  1. HUMULIN 70/30 [Suspect]
     Indication: DIABETES MELLITUS
     Dosage: 30 IU, EACH MORNING
     Route: 058
     Dates: start: 20090201, end: 20090320
  2. HUMULIN 70/30 [Suspect]
     Dosage: 12 IU, EACH EVENING
     Route: 058
     Dates: start: 20090201, end: 20090320
  3. ENALAPRIL [Concomitant]
     Indication: HYPERTENSION
     Dosage: UNK, UNKNOWN
     Route: 065
  4. METOPROLOL [Concomitant]
     Indication: HYPERTENSION
     Dosage: UNK, UNKNOWN
     Route: 065
  5. METAMIZOLE SODIUM [Concomitant]
     Indication: PAIN
     Dosage: UNK, UNKNOWN
     Route: 065
  6. SIMPLEX [Concomitant]
     Dosage: UNK, UNKNOWN
     Route: 065
  7. NEURONTIN [Concomitant]
     Indication: BACK PAIN
     Dosage: 600 MG, UNKNOWN
     Route: 065

REACTIONS (6)
  - BACK PAIN [None]
  - BLINDNESS [None]
  - BLOOD GLUCOSE [None]
  - BLOOD PRESSURE ABNORMAL [None]
  - FEELING ABNORMAL [None]
  - FEELING DRUNK [None]
